FAERS Safety Report 7883346-4 (Version None)
Quarter: 2011Q4

REPORT INFORMATION
  Report Type: 
  Country: None (occurrence: None)
  Receive Date: 20111102
  Receipt Date: 20111031
  Transmission Date: 20120403
  Serious: Yes (Other)
  Sender: FDA-Public Use
  Company Number: US-CEPHALON-2011005314

PATIENT
  Sex: Male

DRUGS (1)
  1. PROVIGIL [Suspect]
     Route: 064
     Dates: start: 20100507, end: 20100712

REACTIONS (2)
  - PREMATURE BABY [None]
  - HYPOTHYROIDISM [None]
